APPROVED DRUG PRODUCT: PAMIDRONATE DISODIUM
Active Ingredient: PAMIDRONATE DISODIUM
Strength: 30MG/VIAL
Dosage Form/Route: INJECTABLE;INJECTION
Application: A077703 | Product #001
Applicant: SUN PHARMA GLOBAL INC
Approved: Dec 24, 2008 | RLD: No | RS: No | Type: DISCN